FAERS Safety Report 8998650 (Version 1)
Quarter: 2013Q1

REPORT INFORMATION
  Report Type: Spontaneous
  Country: CH (occurrence: CH)
  Receive Date: 20130103
  Receipt Date: 20130103
  Transmission Date: 20140127
  Serious: Yes (Life-Threatening, Hospitalization)
  Sender: FDA-Public Use
  Company Number: CH-009507513-1212CHE010780

PATIENT
  Age: 90 Year
  Sex: Female

DRUGS (16)
  1. INEGY [Suspect]
     Dosage: 10 MG, QD
     Route: 048
     Dates: end: 20121208
  2. ZALDIAR [Suspect]
     Indication: PAIN
     Dosage: 325 MG, QID
     Route: 048
     Dates: end: 20121204
  3. ACETAMINOPHEN [Suspect]
     Indication: PAIN
     Dosage: 1000 MG, QID
     Route: 048
     Dates: start: 20121205, end: 20121209
  4. ROCEPHIN [Suspect]
     Dosage: 500 MG, TID
     Dates: start: 20121205, end: 20121209
  5. FLAGYL [Suspect]
     Dosage: 2000 MG, QD
     Dates: start: 20121205, end: 20121209
  6. XARELTO [Suspect]
     Dosage: 10 MG, QD
     Dates: start: 20121207, end: 20121209
  7. AMLODIPINE [Suspect]
     Dosage: 5 MG, QD
     Dates: end: 20121208
  8. ESOMEPRAZOLE [Suspect]
     Dosage: 40 MG, QD
     Dates: start: 20121205, end: 20121209
  9. REMINYL [Suspect]
     Dosage: 16 MG, QD
     Dates: end: 20121211
  10. ZOLPIDEM TARTRATE [Suspect]
     Dosage: 5 MG, QD
  11. CIPRALEX [Suspect]
     Dosage: 10 MG, QD
     Dates: end: 20121206
  12. CALCIPARIN [Concomitant]
     Dosage: UNK, BID
     Dates: start: 20121205, end: 20121209
  13. OMEPRAZOLE [Concomitant]
     Dosage: 20 MG, QD
  14. IBUPROFEN [Concomitant]
     Dosage: 400 MG, PRN
  15. CALCIMAGON D3 [Concomitant]
     Dosage: 500 MG, QD
  16. PREDNISOLONE [Concomitant]
     Dosage: 10 MG, QD

REACTIONS (1)
  - Hepatocellular injury [Not Recovered/Not Resolved]
